FAERS Safety Report 13896058 (Version 1)
Quarter: 2017Q3

REPORT INFORMATION
  Report Type: Spontaneous
  Country: CZ (occurrence: CZ)
  Receive Date: 20170823
  Receipt Date: 20170823
  Transmission Date: 20171127
  Serious: Yes (Hospitalization, Other)
  Sender: FDA-Public Use
  Company Number: CZ-ACCORD-057432

PATIENT
  Age: 13 Month
  Sex: Male

DRUGS (1)
  1. FUROSEMIDE. [Suspect]
     Active Substance: FUROSEMIDE
     Indication: BRONCHOPULMONARY DYSPLASIA

REACTIONS (3)
  - Hypercalciuria [Recovered/Resolved]
  - Calculus urinary [Unknown]
  - Off label use [Unknown]
